FAERS Safety Report 17670946 (Version 2)
Quarter: 2020Q2

REPORT INFORMATION
  Report Type: Spontaneous
  Country: US (occurrence: US)
  Receive Date: 20200415
  Receipt Date: 20200522
  Transmission Date: 20200713
  Serious: No
  Sender: FDA-Public Use
  Company Number: US-HETERO-HET2020US00416

PATIENT
  Sex: Male

DRUGS (2)
  1. VALACYCLOVIR [Suspect]
     Active Substance: VALACYCLOVIR HYDROCHLORIDE
     Indication: HERPES SIMPLEX
     Dosage: 1 GRAM, BID (2 PILLS A DAY)
     Route: 048
     Dates: start: 20200326
  2. VALACYCLOVIR [Suspect]
     Active Substance: VALACYCLOVIR HYDROCHLORIDE
     Dosage: 2 GRAM, TID (2 PILLS 3 TIMES A DAY)
     Route: 048

REACTIONS (1)
  - Drug ineffective [Recovered/Resolved]
